APPROVED DRUG PRODUCT: SODIUM AMINOSALICYLATE
Active Ingredient: AMINOSALICYLATE SODIUM
Strength: 100%
Dosage Form/Route: POWDER;ORAL
Application: A080097 | Product #001
Applicant: HEXCEL CHEMICAL PRODUCTS
Approved: Approved Prior to Jan 1, 1982 | RLD: No | RS: No | Type: DISCN